FAERS Safety Report 5434294-0 (Version None)
Quarter: 2007Q3

REPORT INFORMATION
  Report Type: 
  Country: None (occurrence: None)
  Receive Date: 20070829
  Receipt Date: 20070822
  Transmission Date: 20080115
  Serious: Yes (Life-Threatening)
  Sender: FDA-Public Use
  Company Number: E2090-00305-SPO-JP

PATIENT
  Age: 66 Year
  Sex: Male

DRUGS (9)
  1. ZONISAMIDE [Suspect]
     Indication: EPILEPSY
     Dosage: 300 MG, 1 IN 1 D, ORAL
     Route: 048
     Dates: start: 20070703, end: 20070721
  2. ASPIRIN [Concomitant]
  3. URINORM (BENZBROMARONE) [Concomitant]
  4. URALYT (URALYT) [Concomitant]
  5. GRAMALIL (TIAPRIDE HYDROCHLORIDE) [Concomitant]
  6. MUCOSTA (REBAMIPIDE) [Concomitant]
  7. ROHYPNOL (FLUNITRAZEPAM) [Concomitant]
  8. PURSENNID (SENNA LEAF) [Concomitant]
  9. LAC-B (LACTOBACILLUS BIFIDUS, LYOPHILIZED) [Concomitant]

REACTIONS (1)
  - STEVENS-JOHNSON SYNDROME [None]
